FAERS Safety Report 7324411-X (Version None)
Quarter: 2011Q1

REPORT INFORMATION
  Report Type: 
  Country: None (occurrence: None)
  Receive Date: 20110301
  Receipt Date: 20110215
  Transmission Date: 20110831
  Serious: No
  Sender: FDA-Public Use
  Company Number: US-PFIZER INC-2010085564

PATIENT
  Sex: Female
  Weight: 44.4 kg

DRUGS (2)
  1. DEPO-PROVERA [Suspect]
     Indication: CONTRACEPTION
     Dosage: 150 MG, EVERY 12 WEEKS
     Dates: start: 20100302, end: 20100528
  2. MULTIVITAMIN [Concomitant]
     Dosage: UNK
     Dates: start: 20100302, end: 20100630

REACTIONS (2)
  - INAPPROPRIATE SCHEDULE OF DRUG ADMINISTRATION [None]
  - UNINTENDED PREGNANCY [None]
